FAERS Safety Report 5677275-4 (Version None)
Quarter: 2008Q1

REPORT INFORMATION
  Report Type: 
  Country: None (occurrence: None)
  Receive Date: 20080320
  Receipt Date: 20080320
  Transmission Date: 20080703
  Serious: No
  Sender: FDA-Public Use
  Company Number: None

PATIENT
  Age: 22 Year
  Sex: Male

DRUGS (1)
  1. AVINZA [Suspect]
     Dosage: TRANSDERMAL
     Route: 062
     Dates: start: 20080308, end: 20080308

REACTIONS (2)
  - ERYTHEMA [None]
  - SKIN WARM [None]
